FAERS Safety Report 19164939 (Version 2)
Quarter: 2021Q2

REPORT INFORMATION
  Report Type: Report from Study
  Country: CL (occurrence: CL)
  Receive Date: 20210421
  Receipt Date: 20210504
  Transmission Date: 20210717
  Serious: No
  Sender: FDA-Public Use
  Company Number: CL-JNJFOC-20210437466

PATIENT
  Age: 29 Year
  Sex: Female

DRUGS (2)
  1. BREELIB [Suspect]
     Active Substance: ILOPROST
     Indication: PRODUCT USED FOR UNKNOWN INDICATION
     Route: 065
  2. VENTAVIS [Suspect]
     Active Substance: ILOPROST
     Indication: PULMONARY HYPERTENSION
     Dosage: 1 ML EVERY 3 HOURS 6 TIMES PER DAY
     Route: 055
     Dates: start: 20200908

REACTIONS (6)
  - Drug ineffective [Recovered/Resolved]
  - Incorrect product administration duration [Unknown]
  - Drug dose omission by device [Unknown]
  - Dyspnoea [Recovered/Resolved]
  - Drug delivery system malfunction [Unknown]
  - Suffocation feeling [Recovered/Resolved]

NARRATIVE: CASE EVENT DATE: 20210409
